FAERS Safety Report 6974542-9 (Version None)
Quarter: 2010Q3

REPORT INFORMATION
  Report Type: 
  Country: None (occurrence: None)
  Receive Date: 20100909
  Receipt Date: 20100909
  Transmission Date: 20110219
  Serious: Yes (Hospitalization)
  Sender: FDA-Public Use
  Company Number: None

PATIENT
  Age: 38 Year
  Sex: Male
  Weight: 83 kg

DRUGS (1)
  1. FENTANYL CITRATE [Suspect]
     Indication: PAIN
     Dosage: 50 MG OTHER OTHER
     Route: 050
     Dates: start: 20100830, end: 20100831

REACTIONS (5)
  - CONVULSION [None]
  - HEADACHE [None]
  - PAIN [None]
  - POOR QUALITY SLEEP [None]
  - VOMITING [None]
